FAERS Safety Report 7389862-6 (Version None)
Quarter: 2011Q2

REPORT INFORMATION
  Report Type: 
  Country: None (occurrence: None)
  Receive Date: 20110401
  Receipt Date: 20110321
  Transmission Date: 20111010
  Serious: Yes (Other)
  Sender: FDA-Public Use
  Company Number: US-MYLANLABS-2011S1003008

PATIENT
  Age: 59 Year
  Sex: Female

DRUGS (13)
  1. CLOZAPINE [Suspect]
     Route: 048
     Dates: start: 20110202, end: 20110213
  2. CLOZAPINE [Suspect]
     Route: 048
     Dates: start: 20110101, end: 20110123
  3. CLOZAPINE [Suspect]
     Route: 048
     Dates: start: 20110202, end: 20110213
  4. BENZTROPINE [Concomitant]
     Indication: EXTRAPYRAMIDAL DISORDER
  5. CLOZAPINE [Suspect]
     Indication: PSYCHOTIC DISORDER
     Route: 048
     Dates: start: 20110114, end: 20110101
  6. CLOZAPINE [Suspect]
     Route: 048
     Dates: start: 20110101, end: 20110123
  7. CLOZAPINE [Suspect]
     Route: 048
     Dates: start: 20110202, end: 20110213
  8. TRAZODONE HCL [Concomitant]
     Indication: INSOMNIA
  9. HYDROCHLOROTHIAZIDE [Concomitant]
     Dosage: HYPERTENSION
  10. RISPERIDONE [Concomitant]
  11. HYDROXYZINE [Concomitant]
     Indication: ANXIETY
  12. CLOZAPINE [Suspect]
     Indication: SCHIZOPHRENIA
     Route: 048
     Dates: start: 20110114, end: 20110101
  13. CLOZAPINE [Suspect]
     Route: 048
     Dates: start: 20110202, end: 20110213

REACTIONS (7)
  - PNEUMONIA [None]
  - PYREXIA [None]
  - EAR INFECTION [None]
  - TACHYCARDIA [None]
  - ASTHENIA [None]
  - HYPERHIDROSIS [None]
  - COUGH [None]
